FAERS Safety Report 25502743 (Version 1)
Quarter: 2025Q3

REPORT INFORMATION
  Report Type: Report from Study
  Country: SY (occurrence: SY)
  Receive Date: 20250702
  Receipt Date: 20250702
  Transmission Date: 20251020
  Serious: Yes (Hospitalization, Other)
  Sender: RANBAXY
  Company Number: SY-SUN PHARMACEUTICAL INDUSTRIES INC-2025R1-514161

PATIENT
  Age: 75 Year
  Sex: Male

DRUGS (1)
  1. DOXORUBICIN [Suspect]
     Active Substance: DOXORUBICIN
     Indication: Transitional cell carcinoma
     Route: 043

REACTIONS (2)
  - Contracted bladder [Recovering/Resolving]
  - Vesicoureteric reflux [Recovering/Resolving]
